FAERS Safety Report 6492662-2 (Version None)
Quarter: 2009Q4

REPORT INFORMATION
  Report Type: 
  Country: None (occurrence: None)
  Receive Date: 20091214
  Receipt Date: 20091203
  Transmission Date: 20100525
  Serious: Yes (Death, Hospitalization)
  Sender: FDA-Public Use
  Company Number: FR-KINGPHARMUSA00001-K200901512

PATIENT
  Age: 78 Year
  Sex: Female

DRUGS (10)
  1. ALTACE [Suspect]
     Indication: HYPERTENSION
     Dosage: 7.5 MG, QD
     Route: 048
     Dates: start: 20090403, end: 20091007
  2. CORDARONE [Suspect]
     Indication: ATRIAL FIBRILLATION
     Dosage: 1000 MG, QW
     Route: 048
     Dates: start: 19941101, end: 20091027
  3. LASILIX [Suspect]
     Indication: OEDEMA DUE TO CARDIAC DISEASE
     Dosage: 40 MG, BID
     Route: 048
     Dates: start: 20080101, end: 20091007
  4. SPECIAFOLDINE [Suspect]
     Indication: ANAEMIA
     Dosage: 1 U, QD
     Route: 048
     Dates: end: 20091007
  5. LANTUS [Suspect]
     Indication: INSULIN-REQUIRING TYPE 2 DIABETES MELLITUS
     Dosage: 22 U, QD
     Route: 048
     Dates: start: 20040101, end: 20091024
  6. AUGMENTIN [Suspect]
     Indication: ERYSIPELAS
     Dosage: 10 G, QD
     Route: 048
     Dates: start: 20090804, end: 20091007
  7. NEXIUM [Suspect]
     Indication: GASTRITIS
     Dosage: 40 MG, QD
     Route: 048
     Dates: start: 20080801, end: 20091002
  8. PREVISCAN [Suspect]
     Indication: ATRIAL FIBRILLATION
     Dosage: 5 MG, QD
     Route: 048
     Dates: start: 19930101, end: 20091027
  9. DAFALGAN [Suspect]
     Indication: ANALGESIC THERAPY
     Dosage: UNK
     Route: 048
     Dates: start: 19900101, end: 20091007
  10. TEMESTA [Suspect]
     Indication: ANXIETY
     Dosage: 1 U, QD
     Route: 048
     Dates: start: 19910101, end: 20091007

REACTIONS (10)
  - ANGIOPATHY [None]
  - CARDIAC FAILURE [None]
  - CLOSTRIDIUM DIFFICILE COLITIS [None]
  - DEHYDRATION [None]
  - DIARRHOEA [None]
  - ERYSIPELAS [None]
  - HYPONATRAEMIA [None]
  - NAUSEA [None]
  - RENAL FAILURE ACUTE [None]
  - VOMITING [None]
